FAERS Safety Report 13779277 (Version 1)
Quarter: 2017Q3

REPORT INFORMATION
  Report Type: Other
  Country: US (occurrence: US)
  Receive Date: 20170721
  Receipt Date: 20170721
  Transmission Date: 20171127
  Serious: No
  Sender: FDA-Public Use
  Company Number: US-ALEMBIC PHARMACUETICALS LIMITED-2017SCAL000492

PATIENT

DRUGS (1)
  1. DESVENLAFAXINE SUCCINATE. [Suspect]
     Active Substance: DESVENLAFAXINE SUCCINATE
     Indication: PRODUCT USED FOR UNKNOWN INDICATION
     Dosage: UNK

REACTIONS (8)
  - Crying [Unknown]
  - Nausea [Unknown]
  - Nervousness [Unknown]
  - Insomnia [Unknown]
  - Headache [Unknown]
  - Irritability [Unknown]
  - Depressed mood [Unknown]
  - Product substitution issue [Unknown]
